FAERS Safety Report 6359811-8 (Version None)
Quarter: 2009Q3

REPORT INFORMATION
  Report Type: 
  Country: None (occurrence: None)
  Receive Date: 20090917
  Receipt Date: 20090911
  Transmission Date: 20100115
  Serious: Yes (Hospitalization, Other)
  Sender: FDA-Public Use
  Company Number: A0806916A

PATIENT
  Age: 54 Year
  Sex: Female

DRUGS (8)
  1. LAMICTAL [Suspect]
     Indication: CONVULSION
     Dosage: 100MG THREE TIMES PER DAY
     Route: 048
     Dates: start: 20090801
  2. SEROQUEL [Concomitant]
  3. SONATA [Concomitant]
  4. NEXIUM [Concomitant]
  5. BENICAR [Concomitant]
  6. LIBRAX [Concomitant]
  7. METOPROLOL TARTRATE [Concomitant]
  8. CLONAZEPAM [Concomitant]

REACTIONS (1)
  - HYPOTENSION [None]
